FAERS Safety Report 17016140 (Version 1)
Quarter: 2019Q4

REPORT INFORMATION
  Report Type: Spontaneous
  Country: US (occurrence: US)
  Receive Date: 20191111
  Receipt Date: 20191111
  Transmission Date: 20200122
  Serious: No
  Sender: FDA-Public Use
  Company Number: US-ASTRAZENECA-2019SF47766

PATIENT
  Sex: Female

DRUGS (2)
  1. CRESTOR [Suspect]
     Active Substance: ROSUVASTATIN CALCIUM
     Route: 048
  2. COENZYME Q10 [Concomitant]
     Active Substance: UBIDECARENONE

REACTIONS (6)
  - Nausea [Unknown]
  - Dizziness [Unknown]
  - Abdominal discomfort [Unknown]
  - Muscular weakness [Unknown]
  - Fatigue [Unknown]
  - Vomiting [Unknown]
